FAERS Safety Report 23998518 (Version 1)
Quarter: 2024Q2

REPORT INFORMATION
  Report Type: Spontaneous
  Country: US (occurrence: US)
  Receive Date: 20240621
  Receipt Date: 20240621
  Transmission Date: 20240716
  Serious: Yes (Hospitalization, Other)
  Sender: FDA-Public Use
  Company Number: US-PFIZER INC-PV202400077169

PATIENT
  Sex: Female

DRUGS (2)
  1. KEYTRUDA [Suspect]
     Active Substance: PEMBROLIZUMAB
     Indication: Clear cell renal cell carcinoma
     Dosage: CYCLE 1 DAY 1 (C1D1) EVERY 21 DAYS (Q21D) CYCLE LENGTH: 21 NUMBER CYCLES: 8 TREATMENT INTENT: PALLIA
     Dates: start: 20240430, end: 20240430
  2. INLYTA [Suspect]
     Active Substance: AXITINIB
     Indication: Clear cell renal cell carcinoma
     Dosage: 3 TABLET ORALLY EVERY 12 HOURS; STRENGTH: 1 MG; TAKE WHOLE WITH WATER; DISPENSE: 180 TABLET; REFILLS
     Route: 048
     Dates: start: 20240430, end: 20240430

REACTIONS (1)
  - Pneumonia [Unknown]

NARRATIVE: CASE EVENT DATE: 20240526
